FAERS Safety Report 21065509 (Version 1)
Quarter: 2022Q3

REPORT INFORMATION
  Report Type: Spontaneous
  Country: US (occurrence: None)
  Receive Date: 20220711
  Receipt Date: 20220711
  Transmission Date: 20221026
  Serious: Yes (Other)
  Sender: FDA-Public Use
  Company Number: None

PATIENT
  Age: 64 Year
  Sex: Male

DRUGS (1)
  1. EVEROLIMUS [Suspect]
     Active Substance: EVEROLIMUS
     Dosage: FREQUENCY : DAILY;?
     Route: 048
     Dates: start: 202205

REACTIONS (7)
  - Pain in extremity [None]
  - Peripheral swelling [None]
  - Fatigue [None]
  - Stomatitis [None]
  - Pain in extremity [None]
  - Pain in extremity [None]
  - Therapy interrupted [None]

NARRATIVE: CASE EVENT DATE: 20220711
